FAERS Safety Report 19877104 (Version 1)
Quarter: 2021Q3

REPORT INFORMATION
  Report Type: Spontaneous
  Country: US (occurrence: US)
  Receive Date: 20210923
  Receipt Date: 20210923
  Transmission Date: 20211014
  Serious: No
  Sender: FDA-Public Use
  Company Number: None

PATIENT
  Age: 38 Year
  Sex: Male

DRUGS (1)
  1. NALTREXONE (NALTREXONE (EQV?VIVITROL) 380/VIL INJ, SUSP,SA) [Suspect]
     Active Substance: NALTREXONE
     Indication: ALCOHOL USE DISORDER
     Route: 058
     Dates: start: 20210830

REACTIONS (3)
  - Injection site pain [None]
  - Injection site swelling [None]
  - Injection site abscess [None]

NARRATIVE: CASE EVENT DATE: 20210912
